FAERS Safety Report 21764785 (Version 9)
Quarter: 2023Q1

REPORT INFORMATION
  Report Type: Report from Study
  Country: GB (occurrence: GB)
  Receive Date: 20221222
  Receipt Date: 20230227
  Transmission Date: 20230418
  Serious: Yes (Life-Threatening, Hospitalization)
  Sender: FDA-Public Use
  Company Number: GB-Accord-240197

PATIENT
  Age: 45 Year
  Sex: Male
  Weight: 98.7 kg

DRUGS (51)
  1. CARBOPLATIN [Suspect]
     Active Substance: CARBOPLATIN
     Indication: Diffuse large B-cell lymphoma stage II
     Dosage: 5 AUC
     Route: 042
     Dates: start: 20211006
  2. CARBOPLATIN [Suspect]
     Active Substance: CARBOPLATIN
     Indication: Diffuse large B-cell lymphoma
     Dosage: 5 AUC, 750 MG 1Q3W
     Route: 042
     Dates: start: 20210901
  3. CARBOPLATIN [Suspect]
     Active Substance: CARBOPLATIN
     Route: 042
  4. CARBOPLATIN [Suspect]
     Active Substance: CARBOPLATIN
     Route: 065
  5. DALTEPARIN SODIUM [Suspect]
     Active Substance: DALTEPARIN SODIUM
     Indication: Prophylaxis
     Dosage: 5000 IU, 1X/DAY?MOST RECENT DOSE :08/SEP/2021
     Route: 058
     Dates: start: 202107
  6. DEXAMETHASONE [Suspect]
     Active Substance: DEXAMETHASONE
     Indication: Diffuse large B-cell lymphoma stage II
     Dosage: 16 MG AT 15: 20 HRS
     Route: 048
     Dates: start: 20210909, end: 20210911
  7. DEXAMETHASONE [Suspect]
     Active Substance: DEXAMETHASONE
     Indication: Diffuse large B-cell lymphoma
     Dosage: SINGLE
     Route: 048
     Dates: start: 20210831, end: 20210831
  8. DEXAMETHASONE [Suspect]
     Active Substance: DEXAMETHASONE
     Dosage: SINGLE
     Route: 048
     Dates: start: 20211009
  9. DEXAMETHASONE [Suspect]
     Active Substance: DEXAMETHASONE
     Dosage: SINGLE
     Route: 048
     Dates: start: 20210908
  10. DEXAMETHASONE [Suspect]
     Active Substance: DEXAMETHASONE
     Dosage: SINGLE
     Route: 042
     Dates: start: 20210908, end: 20210908
  11. DEXAMETHASONE [Suspect]
     Active Substance: DEXAMETHASONE
     Dosage: SINGLE
     Route: 048
     Dates: start: 20211008
  12. DEXAMETHASONE [Suspect]
     Active Substance: DEXAMETHASONE
     Dosage: SINGLE
     Route: 048
     Dates: start: 20210902, end: 20210903
  13. DEXAMETHASONE [Suspect]
     Active Substance: DEXAMETHASONE
     Dosage: SINGLE?MOST RECENT DOSE RECEIVED ON 25/SEP/2021
     Route: 048
     Dates: start: 20210923
  14. DEXAMETHASONE [Suspect]
     Active Substance: DEXAMETHASONE
     Dosage: SINGLE
     Route: 042
     Dates: start: 20210922, end: 20210922
  15. DEXAMETHASONE [Suspect]
     Active Substance: DEXAMETHASONE
     Dosage: SINGLE
     Route: 048
     Dates: start: 20210923, end: 20210925
  16. EPCORITAMAB [Suspect]
     Active Substance: EPCORITAMAB
     Indication: Diffuse large B-cell lymphoma stage II
     Dosage: 0.8 MG, SINGLE (INTERMEDIATE DOSE)
     Route: 058
     Dates: start: 20210908, end: 20210908
  17. EPCORITAMAB [Suspect]
     Active Substance: EPCORITAMAB
     Indication: Diffuse large B-cell lymphoma
     Dosage: 0.16 MILLIGRAM, SINGLE
     Route: 058
     Dates: start: 20210922
  18. EPCORITAMAB [Suspect]
     Active Substance: EPCORITAMAB
     Dosage: 0.16 MILLIGRAM, SINGLE
     Route: 058
     Dates: start: 20210901, end: 20210901
  19. EPCORITAMAB [Suspect]
     Active Substance: EPCORITAMAB
     Dosage: C2D15
     Route: 058
     Dates: start: 20211013
  20. EPCORITAMAB [Suspect]
     Active Substance: EPCORITAMAB
     Route: 065
  21. EPCORITAMAB [Suspect]
     Active Substance: EPCORITAMAB
     Dosage: 0.16 MG, SINGLE (PRIMING DOSE)
     Route: 058
     Dates: start: 20210901, end: 20210901
  22. RITUXIMAB [Suspect]
     Active Substance: RITUXIMAB
     Indication: Diffuse large B-cell lymphoma stage II
     Dosage: 1Q3W DATE OF LAST DOSE PRIOR TO THE EVENT 31/AUG/2021
     Route: 042
     Dates: start: 20211006
  23. RITUXIMAB [Suspect]
     Active Substance: RITUXIMAB
     Dosage: 1Q3W
     Route: 042
     Dates: start: 20210831
  24. CYTARABINE [Suspect]
     Active Substance: CYTARABINE
     Indication: Diffuse large B-cell lymphoma stage II
     Dosage: 1000 MG/M2, 1Q2H
     Route: 042
     Dates: start: 20211006, end: 20211007
  25. CYTARABINE [Suspect]
     Active Substance: CYTARABINE
     Indication: Diffuse large B-cell lymphoma
     Dosage: 2000 MG/M2, BID
     Route: 042
     Dates: start: 20210901, end: 20210902
  26. CYTARABINE [Suspect]
     Active Substance: CYTARABINE
     Dosage: 2000 MG/M2, EVERY 12 HOURS
     Route: 042
     Dates: start: 20210901, end: 20210902
  27. CYTARABINE [Suspect]
     Active Substance: CYTARABINE
     Dosage: 2000 MG/M2, EVERY 12 HOURS
     Route: 042
     Dates: start: 20210902
  28. CYTARABINE [Suspect]
     Active Substance: CYTARABINE
     Dosage: 16 MG, SINGLE
     Route: 042
     Dates: start: 20210922, end: 20210922
  29. CYTARABINE [Suspect]
     Active Substance: CYTARABINE
     Route: 042
  30. CYTARABINE [Suspect]
     Active Substance: CYTARABINE
     Route: 065
  31. CYTARABINE [Suspect]
     Active Substance: CYTARABINE
     Route: 042
  32. FRAGMIN [Suspect]
     Active Substance: DALTEPARIN SODIUM
     Indication: Prophylaxis
     Dosage: 5000 UNITS, QD?MOST RECENT DOSE RECEIVED ON 08/SEP/2021
     Route: 058
     Dates: start: 202107
  33. ACYCLOVIR [Concomitant]
     Active Substance: ACYCLOVIR
     Dates: start: 202103
  34. CHLORPHENIRAMINE MALEATE [Concomitant]
     Active Substance: CHLORPHENIRAMINE MALEATE
     Dosage: 10 MG
     Route: 042
     Dates: start: 20210908, end: 20210908
  35. CHLORPHENIRAMINE MALEATE [Concomitant]
     Active Substance: CHLORPHENIRAMINE MALEATE
     Route: 042
     Dates: start: 20210831, end: 20210831
  36. CHLORPHENIRAMINE MALEATE [Concomitant]
     Active Substance: CHLORPHENIRAMINE MALEATE
     Dosage: 10 MG
     Route: 042
     Dates: start: 20210901, end: 20210901
  37. CHLORPHENIRAMINE MALEATE [Concomitant]
     Active Substance: CHLORPHENIRAMINE MALEATE
     Dosage: 10 MG
     Route: 042
     Dates: start: 20210908, end: 20210922
  38. FILGRASTIM [Concomitant]
     Active Substance: FILGRASTIM
     Dates: start: 202104
  39. FLUOXETINE [Concomitant]
     Active Substance: FLUOXETINE HYDROCHLORIDE
     Dates: start: 202103
  40. FOLIC ACID [Concomitant]
     Active Substance: FOLIC ACID
     Dates: start: 202104
  41. LANSOPRAZOLE [Concomitant]
     Active Substance: LANSOPRAZOLE
     Dates: start: 202104
  42. METOCLOPRAMIDE [Concomitant]
     Active Substance: METOCLOPRAMIDE
     Dates: start: 20211011
  43. ONDANSETRON [Concomitant]
     Active Substance: ONDANSETRON
     Dates: start: 20210901, end: 20210901
  44. ACETAMINOPHEN [Concomitant]
     Active Substance: ACETAMINOPHEN
     Dates: start: 20210901
  45. ACETAMINOPHEN [Concomitant]
     Active Substance: ACETAMINOPHEN
     Dates: start: 20210908, end: 20210922
  46. ACETAMINOPHEN [Concomitant]
     Active Substance: ACETAMINOPHEN
     Dates: start: 20210908, end: 20210908
  47. ACETAMINOPHEN [Concomitant]
     Active Substance: ACETAMINOPHEN
     Route: 048
     Dates: start: 20210831, end: 20210908
  48. POSACONAZOLE [Concomitant]
     Active Substance: POSACONAZOLE
     Dates: start: 202107
  49. DEXAMETHASONE [Concomitant]
     Active Substance: DEXAMETHASONE
     Indication: Prophylaxis
     Dates: start: 20210902, end: 20210911
  50. DEXAMETHASONE [Concomitant]
     Active Substance: DEXAMETHASONE
     Route: 042
     Dates: start: 20210908, end: 20210908
  51. DEXAMETHASONE [Concomitant]
     Active Substance: DEXAMETHASONE
     Dates: start: 20210909, end: 20210911

REACTIONS (5)
  - Neutropenic infection [Recovered/Resolved]
  - Febrile neutropenia [Recovered/Resolved]
  - Cellulitis [Recovered/Resolved]
  - Thrombocytopenia [Recovered/Resolved]
  - Neutropenia [Unknown]

NARRATIVE: CASE EVENT DATE: 20210908
